FAERS Safety Report 14295778 (Version 3)
Quarter: 2018Q1

REPORT INFORMATION
  Report Type: Report from Study
  Country: IL (occurrence: IL)
  Receive Date: 20171218
  Receipt Date: 20180107
  Transmission Date: 20180509
  Serious: Yes (Hospitalization, Other)
  Sender: FDA-Public Use
  Company Number: IL-TEVA-725065ACC

PATIENT
  Age: 48 Year
  Sex: Female

DRUGS (4)
  1. PROVIGIL [Concomitant]
     Active Substance: MODAFINIL
     Dosage: DOUBLE DOSE
     Dates: start: 201512
  2. CYMBALTA [Concomitant]
     Active Substance: DULOXETINE HYDROCHLORIDE
     Dates: start: 201512, end: 201603
  3. CYMBALTA [Concomitant]
     Active Substance: DULOXETINE HYDROCHLORIDE
     Dates: start: 20161219
  4. COPAXONE [Suspect]
     Active Substance: GLATIRAMER ACETATE
     Indication: MULTIPLE SCLEROSIS
     Dosage: 40MG/ML
     Route: 058
     Dates: start: 20151018, end: 20171207

REACTIONS (5)
  - Multiple sclerosis [Not Recovered/Not Resolved]
  - Paraesthesia [Recovering/Resolving]
  - Fibromyalgia [Not Recovered/Not Resolved]
  - Nuclear magnetic resonance imaging abnormal [Unknown]
  - Multiple sclerosis relapse [Recovering/Resolving]

NARRATIVE: CASE EVENT DATE: 201610
